FAERS Safety Report 9078508 (Version 1)
Quarter: 2013Q1

REPORT INFORMATION
  Report Type: Spontaneous
  Country: US (occurrence: US)
  Receive Date: 20130130
  Receipt Date: 20130130
  Transmission Date: 20140127
  Serious: No
  Sender: FDA-Public Use
  Company Number: US-ASTRAZENECA-2013SE03895

PATIENT
  Age: 69 Year
  Sex: Female
  Weight: 83.9 kg

DRUGS (9)
  1. LISINOPRIL [Suspect]
     Indication: HYPERTENSION
     Dosage: GENERIC
     Route: 048
  2. LISINOPRIL + HCTZ [Suspect]
     Indication: BLOOD PRESSURE
     Dosage: 10+12.5MG UNKNOWN
     Route: 048
     Dates: start: 2012
  3. TAMOXIFEN [Suspect]
     Indication: BREAST CANCER FEMALE
     Dosage: GENERIC
     Route: 048
     Dates: start: 1994, end: 1995
  4. PRAVASTATIN [Concomitant]
     Indication: BLOOD CHOLESTEROL
  5. KRILL OIL [Concomitant]
     Indication: BLOOD CHOLESTEROL
  6. CALCIUM [Concomitant]
  7. VITAMIN D [Concomitant]
  8. ACTONEL [Concomitant]
  9. FOSAMAX [Concomitant]

REACTIONS (13)
  - Osteopenia [Unknown]
  - Eye disorder [Unknown]
  - Body height decreased [Unknown]
  - Weight increased [Unknown]
  - Abdominal distension [Unknown]
  - Bone pain [Unknown]
  - Musculoskeletal stiffness [Unknown]
  - Activities of daily living impaired [Unknown]
  - Blood cholesterol increased [Recovered/Resolved]
  - Hypertension [Unknown]
  - Palpitations [Unknown]
  - Headache [Unknown]
  - Hot flush [Unknown]
